FAERS Safety Report 13454724 (Version 2)
Quarter: 2017Q2

REPORT INFORMATION
  Report Type: Spontaneous
  Country: PT (occurrence: PT)
  Receive Date: 20170418
  Receipt Date: 20170425
  Transmission Date: 20170830
  Serious: Yes (Life-Threatening)
  Sender: FDA-Public Use
  Company Number: PT-SA-2017SA066591

PATIENT
  Age: 77 Year
  Sex: Male

DRUGS (1)
  1. LOVENOX [Suspect]
     Active Substance: ENOXAPARIN SODIUM
     Dosage: 80MG/0,8ML
     Route: 042

REACTIONS (3)
  - Chest pain [Recovering/Resolving]
  - Device occlusion [Recovering/Resolving]
  - Off label use [Unknown]
